FAERS Safety Report 12534274 (Version 2)
Quarter: 2016Q3

REPORT INFORMATION
  Report Type: Report from Study
  Country: CA (occurrence: CA)
  Receive Date: 20160706
  Receipt Date: 20160713
  Transmission Date: 20161109
  Serious: Yes (Hospitalization, Other)
  Sender: FDA-Public Use
  Company Number: CA-ABBVIE-16K-028-1666910-00

PATIENT
  Sex: Male

DRUGS (1)
  1. HUMIRA [Suspect]
     Active Substance: ADALIMUMAB
     Indication: CROHN^S DISEASE
     Route: 058
     Dates: start: 20130730, end: 20160603

REACTIONS (3)
  - Intestinal fistula [Recovered/Resolved]
  - Crohn^s disease [Recovering/Resolving]
  - Drug effect incomplete [Not Recovered/Not Resolved]
